FAERS Safety Report 4746966-1 (Version None)
Quarter: 2005Q3

REPORT INFORMATION
  Report Type: 
  Country: None (occurrence: None)
  Receive Date: 20050817
  Receipt Date: 20041228
  Transmission Date: 20060218
  Serious: Yes (Disabling)
  Sender: FDA-Public Use
  Company Number: US-SANOFI-SYNTHELABO-A03200500048

PATIENT
  Sex: Male

DRUGS (6)
  1. ELIGARD [Suspect]
     Indication: PROSTATE CANCER
     Route: 058
     Dates: start: 20041115, end: 20041115
  2. TERAZOSIN [Concomitant]
     Dosage: UNK
     Route: 065
  3. METOPROLOL [Concomitant]
     Dosage: UNK
     Route: 065
  4. DIOVAN [Concomitant]
     Dosage: UNK
     Route: 065
  5. ALLOPURINOL [Concomitant]
     Dosage: UNK
     Route: 065
  6. ASPIRIN [Concomitant]
     Dosage: UNK
     Route: 065

REACTIONS (5)
  - ASTHENIA [None]
  - HYPONATRAEMIA [None]
  - MACULAR DEGENERATION [None]
  - POLYDIPSIA [None]
  - VISION BLURRED [None]
